FAERS Safety Report 7071047-4 (Version None)
Quarter: 2010Q4

REPORT INFORMATION
  Report Type: 
  Country: None (occurrence: None)
  Receive Date: 20101029
  Receipt Date: 20101026
  Transmission Date: 20110411
  Serious: No
  Sender: FDA-Public Use
  Company Number: US-PFIZER INC-2010136356

PATIENT
  Sex: Male

DRUGS (4)
  1. XANAX [Suspect]
     Indication: ANXIETY
     Dosage: 0.5 MG, AS NEEDED
     Route: 048
  2. ZOLOFT [Suspect]
     Indication: AFFECTIVE DISORDER
     Dosage: 50 MG, AS NEEDED
     Route: 048
     Dates: start: 20090501
  3. RISPERIDONE [Suspect]
     Indication: AFFECTIVE DISORDER
     Dosage: UNK
     Route: 048
  4. KLONOPIN [Suspect]
     Indication: ANXIETY
     Dosage: UNK
     Route: 048

REACTIONS (1)
  - DRUG INEFFECTIVE [None]
